FAERS Safety Report 8326839-8 (Version None)
Quarter: 2012Q2

REPORT INFORMATION
  Report Type: 
  Country: None (occurrence: None)
  Receive Date: 20120501
  Receipt Date: 20120425
  Transmission Date: 20120825
  Serious: Yes (Other)
  Sender: FDA-Public Use
  Company Number: JP-B.I. PHARMACEUTICALS,INC./RIDGEFIELD-2012-BP-09554NB

PATIENT
  Age: 92 Year
  Sex: Male
  Weight: 56 kg

DRUGS (4)
  1. PRADAXA [Suspect]
     Indication: ATRIAL FIBRILLATION
     Dosage: 220 MG
     Route: 048
  2. ADALAT CC [Concomitant]
     Dosage: 10 MG
     Route: 048
  3. CARVEDILOL [Concomitant]
     Dosage: 2.5 MG
     Route: 048
  4. FUROSEMIDE [Concomitant]
     Dosage: 20 MG
     Route: 048

REACTIONS (2)
  - CEREBRAL INFARCTION [None]
  - DRUG INEFFECTIVE [None]
